FAERS Safety Report 5814772-2 (Version None)
Quarter: 2008Q3

REPORT INFORMATION
  Report Type: 
  Country: None (occurrence: None)
  Receive Date: 20080718
  Receipt Date: 20080711
  Transmission Date: 20090109
  Serious: Yes (Other)
  Sender: FDA-Public Use
  Company Number: GB-ROCHE-571455

PATIENT
  Sex: Female
  Weight: 139.7 kg

DRUGS (10)
  1. ORLISTAT [Suspect]
     Indication: OBESITY
     Route: 048
     Dates: start: 20080629
  2. LEVOTHYROXINE SODIUM [Concomitant]
     Indication: HYPOTHYROIDISM
     Route: 048
     Dates: start: 20040729
  3. ATENOLOL [Concomitant]
     Indication: HYPERTENSION
     Route: 048
  4. FUROSEMIDE [Concomitant]
     Indication: HYPERTENSION
     Route: 048
     Dates: start: 20061005
  5. MICARDIS [Concomitant]
     Indication: HYPERTENSION
     Route: 048
     Dates: start: 20020719
  6. SPIRONOLACTONE [Concomitant]
     Indication: HYPERTENSION
     Route: 048
     Dates: start: 20060224
  7. ALLOPURINOL [Concomitant]
     Indication: GOUT
     Route: 048
     Dates: start: 20030919
  8. CETRABEN [Concomitant]
     Indication: ECZEMA
     Dosage: ENTERED AS CETRABEN EMOLLIENT
     Route: 061
     Dates: start: 20060922
  9. DOUBLEBASE [Concomitant]
     Indication: ECZEMA
     Dosage: ENTERED AS DOUBLE BASE GEL.
     Route: 061
     Dates: start: 20060922
  10. ACETAMINOPHEN W/ CODEINE [Concomitant]
     Indication: MUSCULOSKELETAL PAIN
     Dosage: ENTERED AS 30/500 2 TABLETS QDS PRN.
     Dates: start: 20050616

REACTIONS (1)
  - DEEP VEIN THROMBOSIS [None]
